FAERS Safety Report 22592365 (Version 1)
Quarter: 2023Q2

REPORT INFORMATION
  Report Type: Spontaneous
  Country: US (occurrence: US)
  Receive Date: 20230613
  Receipt Date: 20230613
  Transmission Date: 20230721
  Serious: No
  Sender: FDA-Public Use
  Company Number: US-GLENMARK PHARMACEUTICALS-2023GMK079462

PATIENT

DRUGS (2)
  1. TACROLIMUS [Suspect]
     Active Substance: TACROLIMUS
     Indication: Rash
     Dosage: UNK UNK, BID
     Route: 061
     Dates: start: 202302
  2. TACROLIMUS [Suspect]
     Active Substance: TACROLIMUS
     Indication: Pruritus

REACTIONS (7)
  - Condition aggravated [Unknown]
  - Product use in unapproved indication [Unknown]
  - Application site irritation [Unknown]
  - Application site pain [Unknown]
  - Application site erythema [Unknown]
  - Application site pruritus [Unknown]
  - Drug ineffective [Unknown]

NARRATIVE: CASE EVENT DATE: 20230201
